FAERS Safety Report 24337762 (Version 1)
Quarter: 2024Q3

REPORT INFORMATION
  Report Type: Spontaneous
  Country: CN (occurrence: CN)
  Receive Date: 20240919
  Receipt Date: 20240919
  Transmission Date: 20241016
  Serious: No
  Sender: ROCHE
  Company Number: CN-ROCHE-3483001

PATIENT
  Age: 8 Year
  Sex: Female
  Weight: 23.0 kg

DRUGS (2)
  1. TAMIFLU [Suspect]
     Active Substance: OSELTAMIVIR PHOSPHATE
     Indication: Influenza
     Dosage: THE MOST RECENT DOSE OF OSELTAMIVIR PHOSPHATE WAS TAKEN ON 15/DEC/2023 AT 60 MG (SECOND DOSE).
     Route: 048
     Dates: start: 20231214, end: 20231215
  2. IBUPROFEN [Concomitant]
     Active Substance: IBUPROFEN
     Indication: Pyrexia
     Route: 048
     Dates: start: 20231214, end: 20231215

REACTIONS (1)
  - Vomiting [Recovered/Resolved]

NARRATIVE: CASE EVENT DATE: 20231214
